FAERS Safety Report 8284753-0 (Version None)
Quarter: 2012Q2

REPORT INFORMATION
  Report Type: 
  Country: None (occurrence: None)
  Receive Date: 20120413
  Receipt Date: 20110622
  Transmission Date: 20120825
  Serious: No
  Sender: FDA-Public Use
  Company Number: US-ASTRAZENECA-2011SE37739

PATIENT
  Age: 60 Year
  Sex: Female
  Weight: 79.4 kg

DRUGS (2)
  1. NEXIUM [Suspect]
     Indication: GASTROOESOPHAGEAL REFLUX DISEASE
     Route: 048
     Dates: start: 20010101
  2. LIPITOR [Concomitant]

REACTIONS (6)
  - VITAMIN D DEFICIENCY [None]
  - INCORRECT DRUG ADMINISTRATION DURATION [None]
  - CONDITION AGGRAVATED [None]
  - BLOOD CHOLESTEROL INCREASED [None]
  - WEIGHT INCREASED [None]
  - DRUG DOSE OMISSION [None]
